FAERS Safety Report 8199333-5 (Version None)
Quarter: 2012Q1

REPORT INFORMATION
  Report Type: 
  Country: None (occurrence: None)
  Receive Date: 20120309
  Receipt Date: 20120305
  Transmission Date: 20120608
  Serious: Yes (Hospitalization)
  Sender: FDA-Public Use
  Company Number: GXKR2012DE001041

PATIENT

DRUGS (1)
  1. CEFPODOXIME PROXETIL [Suspect]
     Indication: BRONCHITIS
     Dosage: 200 MG, BID 1-0-1
     Route: 048
     Dates: start: 20111128, end: 20111130

REACTIONS (2)
  - PANCREATITIS ACUTE [None]
  - ABDOMINAL PAIN [None]
